FAERS Safety Report 5024606-4 (Version None)
Quarter: 2006Q2

REPORT INFORMATION
  Report Type: 
  Country: None (occurrence: None)
  Receive Date: 20060613
  Receipt Date: 20060531
  Transmission Date: 20061013
  Serious: Yes (Other)
  Sender: FDA-Public Use
  Company Number: AU-AMGEN-US178030

PATIENT
  Sex: Male
  Weight: 8 kg

DRUGS (3)
  1. ARANESP [Suspect]
     Indication: DIALYSIS
  2. CALCIUM GLUCONATE [Concomitant]
  3. SODIUM BICARBONATE [Concomitant]

REACTIONS (3)
  - APLASIA PURE RED CELL [None]
  - APLASTIC ANAEMIA [None]
  - THERAPEUTIC RESPONSE DECREASED [None]
